FAERS Safety Report 5649704-3 (Version None)
Quarter: 2008Q1

REPORT INFORMATION
  Report Type: 
  Country: None (occurrence: None)
  Receive Date: 20080304
  Receipt Date: 20080207
  Transmission Date: 20080703
  Serious: No
  Sender: FDA-Public Use
  Company Number: US-BOEHRINGER INGELHEIM GMBH, GERMANY-2008-BP-00286BP

PATIENT
  Age: 3 Year
  Sex: Male

DRUGS (4)
  1. CATAPRES-TTS-1 [Suspect]
     Indication: AUTONOMIC NERVOUS SYSTEM IMBALANCE
     Route: 061
     Dates: start: 20071219
  2. CATAPRES-TTS-1 [Suspect]
     Route: 061
  3. CATAPRES-TTS-1 [Suspect]
     Route: 061
  4. SINGULAIR [Concomitant]
     Indication: NASAL CONGESTION

REACTIONS (4)
  - HYPERTENSION [None]
  - HYPOTENSION [None]
  - LETHARGY [None]
  - PSYCHOMOTOR HYPERACTIVITY [None]
